FAERS Safety Report 7990497-2 (Version None)
Quarter: 2011Q4

REPORT INFORMATION
  Report Type: 
  Country: None (occurrence: None)
  Receive Date: 20111219
  Receipt Date: 20101101
  Transmission Date: 20120403
  Serious: No
  Sender: FDA-Public Use
  Company Number: US-ASTRAZENECA-2010SE45818

PATIENT
  Sex: Female

DRUGS (1)
  1. CRESTOR [Suspect]
     Route: 048

REACTIONS (9)
  - MALAISE [None]
  - RASH [None]
  - SENSATION OF HEAVINESS [None]
  - NAUSEA [None]
  - ABDOMINAL DISTENSION [None]
  - DRUG DOSE OMISSION [None]
  - SKIN EXFOLIATION [None]
  - PAIN IN EXTREMITY [None]
  - MUSCULAR WEAKNESS [None]
